FAERS Safety Report 9439235 (Version 8)
Quarter: 2014Q1

REPORT INFORMATION
  Report Type: Report from Study
  Country: CA (occurrence: CA)
  Receive Date: 20130804
  Receipt Date: 20140331
  Transmission Date: 20141002
  Serious: Yes (Hospitalization, Other)
  Sender: FDA-Public Use
  Company Number: CA-ROCHE-1054296

PATIENT
  Age: 73 Year
  Sex: Female
  Weight: 50.3 kg

DRUGS (21)
  1. ACTEMRA [Suspect]
     Indication: RHEUMATOID ARTHRITIS
     Route: 042
     Dates: start: 20110407, end: 20120215
  2. RITUXAN [Suspect]
     Indication: RHEUMATOID ARTHRITIS
     Route: 042
     Dates: start: 20130128
  3. PREDNISONE [Concomitant]
  4. ASPIRIN [Concomitant]
  5. BISOPROLOL [Concomitant]
  6. OMEPRAZOLE [Concomitant]
  7. DIGOXIN [Concomitant]
  8. MIRTAZAPINE [Concomitant]
     Indication: DEPRESSION
  9. CLONAZEPAM [Concomitant]
  10. TYLENOL [Concomitant]
     Route: 065
  11. TYLENOL [Concomitant]
     Route: 048
     Dates: start: 20130128
  12. ADVAIR [Concomitant]
     Dosage: PUFFER
     Route: 065
  13. SPIRIVA [Concomitant]
     Dosage: PUFFER
     Route: 065
  14. MOMETASONE [Concomitant]
     Route: 045
  15. DILAUDID [Concomitant]
     Route: 065
     Dates: start: 201107
  16. CHOLESTYRAMINE [Concomitant]
  17. VENTOLIN [Concomitant]
  18. AVAMYS [Concomitant]
  19. REFRESH TEARS [Concomitant]
  20. BENADRYL (CANADA) [Concomitant]
     Route: 048
     Dates: start: 20130128
  21. SOLU-MEDROL [Concomitant]
     Route: 042
     Dates: start: 20130128

REACTIONS (12)
  - Diarrhoea [Recovered/Resolved]
  - Diarrhoea [Not Recovered/Not Resolved]
  - Pancreatitis chronic [Not Recovered/Not Resolved]
  - Bacterial infection [Recovered/Resolved]
  - Hypotension [Recovered/Resolved]
  - Pneumonia [Recovered/Resolved]
  - Infusion related reaction [Recovered/Resolved]
  - Heart rate decreased [Recovered/Resolved]
  - Fatigue [Unknown]
  - Hypotension [Unknown]
  - Asthenia [Recovered/Resolved]
  - Malaise [Recovered/Resolved]
